FAERS Safety Report 5394337-X (Version None)
Quarter: 2007Q3

REPORT INFORMATION
  Report Type: 
  Country: None (occurrence: None)
  Receive Date: 20070723
  Receipt Date: 20070607
  Transmission Date: 20080115
  Serious: No
  Sender: FDA-Public Use
  Company Number: A0652861A

PATIENT
  Age: 72 Year
  Sex: Male

DRUGS (5)
  1. AVANDIA [Suspect]
     Dosage: 4MG TWICE PER DAY
     Route: 048
     Dates: end: 20070201
  2. UNKNOWN MEDICATION [Concomitant]
  3. PLAVIX [Concomitant]
  4. TOPROL-XL [Concomitant]
  5. ALASE [Concomitant]

REACTIONS (3)
  - DRUG ADMINISTRATION ERROR [None]
  - LIMB DISCOMFORT [None]
  - OEDEMA PERIPHERAL [None]
